FAERS Safety Report 13385379 (Version 1)
Quarter: 2017Q1

REPORT INFORMATION
  Report Type: Spontaneous
  Country: US (occurrence: US)
  Receive Date: 20170330
  Receipt Date: 20170330
  Transmission Date: 20170429
  Serious: Yes (Hospitalization, Other)
  Sender: FDA-Public Use
  Company Number: US-BRISTOL-MYERS SQUIBB COMPANY-BMS-2017-024131

PATIENT
  Sex: Male
  Weight: 65.77 kg

DRUGS (1)
  1. OPDIVO [Suspect]
     Active Substance: NIVOLUMAB
     Indication: SMALL CELL LUNG CANCER
     Route: 042

REACTIONS (10)
  - Malaise [Unknown]
  - Hospitalisation [Unknown]
  - Metastases to bone [Unknown]
  - Transfusion [Unknown]
  - Mobility decreased [Unknown]
  - Metastases to central nervous system [Unknown]
  - Product use issue [Unknown]
  - Confusional state [Unknown]
  - Hypotension [Unknown]
  - Pneumonia [Unknown]
